FAERS Safety Report 13113577 (Version 3)
Quarter: 2017Q1

REPORT INFORMATION
  Report Type: Spontaneous
  Country: CN (occurrence: CN)
  Receive Date: 20170113
  Receipt Date: 20170308
  Transmission Date: 20170428
  Serious: Yes (Other)
  Sender: FDA-Public Use
  Company Number: CN-PFIZER INC-2017010722

PATIENT
  Age: 76 Year
  Sex: Male
  Weight: 48 kg

DRUGS (2)
  1. DIFLUCAN [Suspect]
     Active Substance: FLUCONAZOLE
     Indication: FUNGAL INFECTION
     Dosage: 400 MG, 1X/DAY
     Route: 041
     Dates: start: 20161014, end: 20161018
  2. SODIUM CHLORIDE. [Concomitant]
     Active Substance: SODIUM CHLORIDE
     Dosage: UNK UNK, 1X/DAY
     Route: 041
     Dates: start: 20161014, end: 20161018

REACTIONS (3)
  - Oedema peripheral [Recovering/Resolving]
  - Renal failure [Recovering/Resolving]
  - Eyelid oedema [Recovering/Resolving]

NARRATIVE: CASE EVENT DATE: 20161017
